FAERS Safety Report 4281941-5 (Version None)
Quarter: 2004Q1

REPORT INFORMATION
  Report Type: 
  Country: None (occurrence: None)
  Receive Date: 20040127
  Receipt Date: 20040116
  Transmission Date: 20041129
  Serious: Yes (Other)
  Sender: FDA-Public Use
  Company Number: HQWYE471919JAN04

PATIENT

DRUGS (2)
  1. MYLOTARG [Suspect]
     Dosage: 4 COURSES; A TOTAL OF 24 MG/M2 WAS ADMINISTERED, INTRAVENOUS
     Route: 042
  2. CYTOXAN [Concomitant]

REACTIONS (4)
  - GRAFT VERSUS HOST DISEASE [None]
  - HEPATIC ENZYME INCREASED [None]
  - HEPATIC FIBROSIS [None]
  - RASH [None]
